FAERS Safety Report 19996489 (Version 5)
Quarter: 2022Q4

REPORT INFORMATION
  Report Type: Report from Study
  Country: IN (occurrence: IN)
  Receive Date: 20211026
  Receipt Date: 20221103
  Transmission Date: 20230113
  Serious: Yes (Death, Other)
  Sender: FDA-Public Use
  Company Number: IN-NOVARTISPH-NVSC2021IN240332

PATIENT
  Age: 54 Year
  Sex: Female

DRUGS (3)
  1. RIBOCICLIB [Suspect]
     Active Substance: RIBOCICLIB
     Indication: Breast cancer metastatic
     Dosage: 400 MG, QD
     Route: 065
     Dates: start: 20190711, end: 20211005
  2. RIBOCICLIB [Suspect]
     Active Substance: RIBOCICLIB
     Dosage: 600 MG, QD
     Route: 065
     Dates: start: 20190711
  3. RIBOCICLIB [Suspect]
     Active Substance: RIBOCICLIB
     Dosage: 600 MG, QD
     Route: 065
     Dates: start: 20211006

REACTIONS (8)
  - Death [Fatal]
  - Intestinal obstruction [Unknown]
  - Musculoskeletal chest pain [Unknown]
  - Dysphagia [Unknown]
  - Skin discolouration [Unknown]
  - Pain [Unknown]
  - Movement disorder [Unknown]
  - Back pain [Unknown]

NARRATIVE: CASE EVENT DATE: 20190810
